FAERS Safety Report 7556689-1 (Version None)
Quarter: 2011Q2

REPORT INFORMATION
  Report Type: 
  Country: None (occurrence: None)
  Receive Date: 20110610
  Receipt Date: 20110601
  Transmission Date: 20111010
  Serious: Yes (Other)
  Sender: FDA-Public Use
  Company Number: A0837052A

PATIENT
  Age: 85 Year
  Sex: Female

DRUGS (1)
  1. SODIUM FLUORIDE (FORMULATION UNKNOWN) (SODIUM FLUORIDE) [Suspect]
     Indication: DENTAL DISORDER PROPHYLAXIS

REACTIONS (18)
  - HEADACHE [None]
  - AURICULAR SWELLING [None]
  - DYSPHAGIA [None]
  - SPEECH DISORDER [None]
  - EAR PAIN [None]
  - DIZZINESS [None]
  - FATIGUE [None]
  - DISTURBANCE IN ATTENTION [None]
  - WEIGHT DECREASED [None]
  - FEELING ABNORMAL [None]
  - AGEUSIA [None]
  - ANOSMIA [None]
  - GINGIVAL SWELLING [None]
  - EAR DISCOMFORT [None]
  - DRUG HYPERSENSITIVITY [None]
  - APHTHOUS STOMATITIS [None]
  - HYPOPHAGIA [None]
  - ALOPECIA [None]
